FAERS Safety Report 24283505 (Version 1)
Quarter: 2024Q3

REPORT INFORMATION
  Report Type: Spontaneous
  Country: US (occurrence: US)
  Receive Date: 20240904
  Receipt Date: 20240904
  Transmission Date: 20241016
  Serious: No
  Sender: SUNOVION
  Company Number: US-SUMITOMO PHARMA SWITZERLAND GMBH-2024SPA001162

PATIENT

DRUGS (1)
  1. GEMTESA [Suspect]
     Active Substance: VIBEGRON
     Indication: Kidney enlargement
     Dosage: 75 MG
     Route: 048
     Dates: start: 20240805

REACTIONS (5)
  - Kidney enlargement [Unknown]
  - Epistaxis [Unknown]
  - Cervicogenic headache [Unknown]
  - Prescription drug used without a prescription [Unknown]
  - Off label use [Unknown]

NARRATIVE: CASE EVENT DATE: 20240801
